FAERS Safety Report 24651264 (Version 1)
Quarter: 2024Q4

REPORT INFORMATION
  Report Type: Spontaneous
  Country: US (occurrence: US)
  Receive Date: 20241122
  Receipt Date: 20241122
  Transmission Date: 20250114
  Serious: No
  Sender: ALVOGEN
  Company Number: US-ALVOGEN-2024095469

PATIENT
  Sex: Female

DRUGS (2)
  1. TERIPARATIDE [Suspect]
     Active Substance: TERIPARATIDE
     Indication: Osteoporosis
     Dosage: USING MEDICATION FOR MONTHS?STRENGTH: 620 MCG/2.48 ML?20 MCG PER DOSE
  2. TERIPARATIDE [Suspect]
     Active Substance: TERIPARATIDE
     Indication: Osteoporosis
     Dosage: EXPIRY DATE: JUN-2025 ?PURCHASED: 03-SEP-2024?STRENGTH: 620 MCG/2.48 ML?20 MCG PER DOSE
     Dates: start: 20240904

REACTIONS (6)
  - Device malfunction [Unknown]
  - Device operational issue [Unknown]
  - Device physical property issue [Unknown]
  - Drug dose omission by device [Unknown]
  - Product use issue [Unknown]
  - Device defective [Unknown]

NARRATIVE: CASE EVENT DATE: 20240905
